FAERS Safety Report 6738759-0 (Version None)
Quarter: 2010Q2

REPORT INFORMATION
  Report Type: 
  Country: None (occurrence: None)
  Receive Date: 20100524
  Receipt Date: 20100511
  Transmission Date: 20101027
  Serious: Yes (Hospitalization)
  Sender: FDA-Public Use
  Company Number: AT-ELI_LILLY_AND_COMPANY-AT201005005593

PATIENT
  Sex: Male
  Weight: 69 kg

DRUGS (7)
  1. PEMETREXED [Suspect]
     Indication: NON-SMALL CELL LUNG CANCER
     Dosage: 625 MG, ONCE EVERY 3 WEEKS
     Route: 042
     Dates: start: 20091130
  2. OTHER PHARMA COMPANY INV DRUG [Suspect]
     Indication: NON-SMALL CELL LUNG CANCER
     Dosage: 800 MG, DAYS 1+8 EVERY 3 WEEKS
     Route: 042
     Dates: start: 20091130
  3. CISPLATIN [Suspect]
     Indication: NON-SMALL CELL LUNG CANCER
     Dosage: 130 MG, EVERY 3 WEEEKS
     Route: 042
     Dates: start: 20091130
  4. DEXAMETHASONE [Concomitant]
     Dosage: UNK, 3/D
  5. FOLSAN [Concomitant]
     Dosage: 0.4 MG, DAILY (1/D)
  6. DICLOFENAC [Concomitant]
     Dosage: 50 MG, DAILY (1/D)
  7. LANSOPRAZOLE [Concomitant]
     Dosage: 30 D/F, DAILY (1/D)

REACTIONS (1)
  - HEMIPLEGIA [None]
